FAERS Safety Report 9735722 (Version 1)
Quarter: 2013Q4

REPORT INFORMATION
  Report Type: Spontaneous
  Country: US (occurrence: None)
  Receive Date: 20131205
  Receipt Date: 20131205
  Transmission Date: 20140711
  Serious: Yes (Death)
  Sender: FDA-Public Use
  Company Number: None

PATIENT
  Age: 76 Year
  Sex: Female

DRUGS (12)
  1. MORPHINE SULFATE [Suspect]
     Indication: BACK PAIN
     Route: 042
     Dates: start: 20131116, end: 20131116
  2. ONDANSETRON [Suspect]
     Indication: BACK PAIN
     Route: 042
     Dates: start: 201311, end: 20131116
  3. NSS 1 LITER [Concomitant]
  4. ASA [Concomitant]
  5. COREG CR [Concomitant]
  6. DIOVAN [Concomitant]
  7. GLIPIZIDE [Concomitant]
  8. HUMULIN N [Concomitant]
  9. JANUVIA [Concomitant]
  10. LEVOXYL [Concomitant]
  11. VICODIN [Concomitant]
  12. VIT D2 [Concomitant]

REACTIONS (5)
  - Blood pressure increased [None]
  - Somnolence [None]
  - Unresponsive to stimuli [None]
  - Blood pressure decreased [None]
  - Heart rate decreased [None]
